FAERS Safety Report 17163166 (Version 1)
Quarter: 2019Q4

REPORT INFORMATION
  Report Type: Spontaneous
  Country: US (occurrence: US)
  Receive Date: 20191124
  Receipt Date: 20191124
  Transmission Date: 20200122
  Serious: No
  Sender: FDA-Public Use
  Company Number: None

PATIENT
  Age: 71 Year
  Sex: Male
  Weight: 76 kg

DRUGS (2)
  1. TICAGRELOR. [Suspect]
     Active Substance: TICAGRELOR
     Indication: ATRIAL FIBRILLATION
     Route: 048
     Dates: start: 20190703
  2. TICAGRELOR. [Suspect]
     Active Substance: TICAGRELOR
     Indication: ANGIOGRAM
     Route: 048
     Dates: start: 20190703

REACTIONS (4)
  - Erythema multiforme [None]
  - Peripheral swelling [None]
  - Haemorrhage [None]
  - Incorrect dose administered [None]

NARRATIVE: CASE EVENT DATE: 20190707
